FAERS Safety Report 16683534 (Version 1)
Quarter: 2019Q3

REPORT INFORMATION
  Report Type: Spontaneous
  Country: JP (occurrence: JP)
  Receive Date: 20190808
  Receipt Date: 20190808
  Transmission Date: 20191004
  Serious: Yes (Death, Other)
  Sender: FDA-Public Use
  Company Number: JP-DSJP-DSJ-2019-128467AA

PATIENT

DRUGS (17)
  1. GEMCITABINE. [Concomitant]
     Active Substance: GEMCITABINE
     Indication: PANCREATIC CARCINOMA
     Dosage: 1400 MG
     Route: 041
     Dates: start: 20190719, end: 20190719
  2. CONIEL [Concomitant]
     Active Substance: BENIDIPINE HYDROCHLORIDE
     Dosage: 1 DF, QD, AFTER DINNER
     Route: 065
  3. OLMESARTAN                         /01635402/ [Concomitant]
     Active Substance: OLMESARTAN MEDOXOMIL
     Dosage: 20 MG, QD, AFTER DINNER
     Route: 065
  4. URIEF [Concomitant]
     Active Substance: SILODOSIN
     Dosage: 4 MG, BID, AFTER BREAKFAST AND DINNER
     Route: 065
  5. LIXIANA OD TABLETS 60MG [Suspect]
     Active Substance: EDOXABAN TOSYLATE
     Indication: MYOCARDIAL ISCHAEMIA
  6. GEMCITABINE. [Concomitant]
     Active Substance: GEMCITABINE
     Indication: METASTASES TO LIVER
  7. PACLITAXEL ALBUMIN [Concomitant]
     Active Substance: PACLITAXEL
     Indication: METASTASES TO LIVER
  8. LIMAPROST ALFADEX [Concomitant]
     Active Substance: LIMAPROST
     Indication: MYOCARDIAL ISCHAEMIA
     Dosage: 5 UG, QD
     Route: 048
  9. HACHIMIJIOGAN [Concomitant]
     Active Substance: HERBALS
     Dosage: 2.5 G, BID, BEFORE LUNCH AND DINNER
     Route: 065
  10. ARTIST [Concomitant]
     Active Substance: CARVEDILOL
     Dosage: 5 MG, QD, AFTER BREAKFAST
     Route: 065
  11. LIXIANA OD TABLETS 60MG [Suspect]
     Active Substance: EDOXABAN TOSYLATE
     Indication: ATRIAL FIBRILLATION
     Dosage: 60 MG, QD
     Route: 048
  12. LIMAPROST ALFADEX [Concomitant]
     Active Substance: LIMAPROST
     Indication: ATRIAL FIBRILLATION
  13. MUCOSTA [Concomitant]
     Active Substance: REBAMIPIDE
     Dosage: 100 MG, BID, AFTER BREAKFAST AND DINNER
     Route: 065
  14. RABEPRAZOLE NA [Concomitant]
     Active Substance: RABEPRAZOLE SODIUM
     Dosage: 10 MG, QD, AFTER DINNER
     Route: 065
  15. PRAVASTATIN NA [Concomitant]
     Active Substance: PRAVASTATIN SODIUM
     Dosage: 10 MG, QD, AFTER DINNER
     Route: 065
  16. PACLITAXEL ALBUMIN [Concomitant]
     Active Substance: PACLITAXEL
     Indication: PANCREATIC CARCINOMA
     Dosage: 180 MG
     Route: 041
     Dates: start: 20190719, end: 20190719
  17. MAGNESIUM OXIDE. [Concomitant]
     Active Substance: MAGNESIUM OXIDE
     Dosage: 660 MG, TID, AFTER EVERY MEAL
     Route: 065

REACTIONS (3)
  - Cerebral haemorrhage [Fatal]
  - Cerebral ventricular rupture [Fatal]
  - Hydrocephalus [Fatal]

NARRATIVE: CASE EVENT DATE: 20190721
